FAERS Safety Report 22312074 (Version 1)
Quarter: 2023Q2

REPORT INFORMATION
  Report Type: Spontaneous
  Country: FR (occurrence: FR)
  Receive Date: 20230512
  Receipt Date: 20230512
  Transmission Date: 20230721
  Serious: Yes (Hospitalization)
  Sender: FDA-Public Use
  Company Number: FR-ROCHE-3207202

PATIENT
  Age: 59 Year
  Sex: Female
  Weight: 49 kg

DRUGS (4)
  1. IRINOTECAN [Suspect]
     Active Substance: IRINOTECAN
     Indication: Neoplasm
     Dosage: 260 MILLIGRAM, 2 WEEK
     Route: 042
     Dates: start: 20220215, end: 20220405
  2. OXALIPLATIN [Suspect]
     Active Substance: OXALIPLATIN
     Indication: Neoplasm
     Dosage: 125 MILLIGRAM, 2 WEEK
     Route: 042
     Dates: start: 20220215, end: 20220405
  3. FOLIC ACID [Suspect]
     Active Substance: FOLIC ACID
     Indication: Neoplasm
     Dosage: 584 MILLIGRAM, 2 WEEK
     Route: 042
     Dates: start: 20220215, end: 20220405
  4. FLUOROURACIL [Suspect]
     Active Substance: FLUOROURACIL
     Indication: Neoplasm
     Dosage: 3500 MILLIGRAM, 2 WEEK
     Route: 042
     Dates: start: 20220215, end: 20220405

REACTIONS (1)
  - Helicobacter gastritis [Recovered/Resolved]

NARRATIVE: CASE EVENT DATE: 20220408
